FAERS Safety Report 9743293 (Version 1)
Quarter: 2013Q4

REPORT INFORMATION
  Report Type: Spontaneous
  Country: US (occurrence: US)
  Receive Date: 20131210
  Receipt Date: 20131210
  Transmission Date: 20140711
  Serious: No
  Sender: FDA-Public Use
  Company Number: US-GILEAD-2009-0025621

PATIENT
  Age: 62 Year
  Sex: Female
  Weight: 108.86 kg

DRUGS (9)
  1. LETAIRIS [Suspect]
     Indication: PULMONARY ARTERIAL HYPERTENSION
     Route: 048
     Dates: start: 20090730, end: 20091111
  2. LASIX [Concomitant]
  3. COUMADIN [Concomitant]
  4. LIPITOR [Concomitant]
  5. DIOVAN HCT [Concomitant]
  6. AMIODARONE [Concomitant]
  7. LEVOTHYROXIN [Concomitant]
  8. METOPROLOL [Concomitant]
  9. POTASSIUM [Concomitant]

REACTIONS (4)
  - Swelling [Not Recovered/Not Resolved]
  - Constipation [Not Recovered/Not Resolved]
  - Nasal disorder [Not Recovered/Not Resolved]
  - Nasal congestion [Not Recovered/Not Resolved]
